FAERS Safety Report 8329028-6 (Version None)
Quarter: 2012Q2

REPORT INFORMATION
  Report Type: 
  Country: None (occurrence: None)
  Receive Date: 20120502
  Receipt Date: 20120418
  Transmission Date: 20120825
  Serious: Yes (Other)
  Sender: FDA-Public Use
  Company Number: SE-AMGEN-SWESP2012004196

PATIENT
  Age: 75 Year
  Sex: Male

DRUGS (12)
  1. PREDNISOLONE [Concomitant]
     Dosage: 5 MG, 1X/DAY
  2. GLYTRIN [Concomitant]
     Dosage: UNK
  3. ACETAMINOPHEN [Concomitant]
     Dosage: UNK
  4. ASPIRIN [Concomitant]
     Dosage: UNK
  5. OMEPRAZOLE [Concomitant]
     Dosage: UNK
  6. METHOTREXATE SODIUM [Suspect]
     Indication: RHEUMATOID ARTHRITIS
     Dosage: 10 MG, WEEKLY
     Route: 048
     Dates: start: 19970101
  7. ENBREL [Suspect]
     Indication: RHEUMATOID ARTHRITIS
     Dosage: 25 MG, 1X/DAY
     Route: 058
     Dates: start: 20070701
  8. ATACAND [Concomitant]
     Dosage: UNK
  9. PREDNISOLONE [Concomitant]
     Dosage: 5 MG, 1X/DAY
  10. OMEPRAZOLE [Concomitant]
     Dosage: UNK
  11. METHOTREXATE [Concomitant]
     Dosage: 10 MG, WEEKLY
     Dates: start: 19970101
  12. LIPITOR [Concomitant]
     Dosage: UNK

REACTIONS (2)
  - MYELOPROLIFERATIVE DISORDER [None]
  - LEUKAEMIA [None]
